FAERS Safety Report 6308063-3 (Version None)
Quarter: 2009Q3

REPORT INFORMATION
  Report Type: 
  Country: None (occurrence: None)
  Receive Date: 20090813
  Receipt Date: 20090805
  Transmission Date: 20100115
  Serious: Yes (Hospitalization)
  Sender: FDA-Public Use
  Company Number: B0587380A

PATIENT
  Sex: Male

DRUGS (10)
  1. AUGMENTIN '125' [Suspect]
     Dosage: 1G THREE TIMES PER DAY
     Route: 042
     Dates: start: 20090617, end: 20090623
  2. TAVANIC [Suspect]
     Dosage: 125MG PER DAY
     Route: 042
     Dates: start: 20090617, end: 20090624
  3. NEXIUM [Concomitant]
     Dosage: 40MG AT NIGHT
     Route: 042
  4. CALCIPARINE [Concomitant]
     Dosage: .2ML TWICE PER DAY
     Route: 065
  5. ZANIDIP [Concomitant]
     Dosage: 10MG PER DAY
     Route: 065
  6. HYPERIUM [Concomitant]
     Dosage: 1MG TWICE PER DAY
     Route: 065
  7. NICARDIPINE HCL [Concomitant]
     Route: 042
  8. INSULIN [Concomitant]
     Route: 065
  9. HYPNOVEL [Concomitant]
     Indication: SEDATION
     Route: 065
     Dates: start: 20090617, end: 20090620
  10. SUFENTANYL [Concomitant]
     Indication: SEDATION
     Route: 065
     Dates: start: 20090617, end: 20090620

REACTIONS (2)
  - BRAIN INJURY [None]
  - DELAYED RECOVERY FROM ANAESTHESIA [None]
